FAERS Safety Report 6942505-5 (Version None)
Quarter: 2010Q3

REPORT INFORMATION
  Report Type: 
  Country: None (occurrence: None)
  Receive Date: 20100826
  Receipt Date: 20100819
  Transmission Date: 20110219
  Serious: Yes (Other)
  Sender: FDA-Public Use
  Company Number: US-ELI_LILLY_AND_COMPANY-US201007002075

PATIENT
  Sex: Female

DRUGS (4)
  1. HUMALOG MIX 75/25 [Suspect]
     Indication: DIABETES MELLITUS
     Dosage: 10 U, 2/D
     Dates: start: 20100608
  2. HUMALOG [Suspect]
  3. MICONAZOLE NITRATE [Concomitant]
     Indication: RASH
  4. INSULINS AND ANALOGUES [Concomitant]

REACTIONS (10)
  - BLOOD GLUCOSE DECREASED [None]
  - BLOOD GLUCOSE INCREASED [None]
  - DIZZINESS [None]
  - FALL [None]
  - INTERCEPTED DRUG DISPENSING ERROR [None]
  - SCAR [None]
  - SKIN EXFOLIATION [None]
  - SKIN ULCER [None]
  - TREMOR [None]
  - URINARY TRACT INFECTION [None]
